FAERS Safety Report 19050627 (Version 2)
Quarter: 2021Q1

REPORT INFORMATION
  Report Type: Spontaneous
  Country: NL (occurrence: NL)
  Receive Date: 20210324
  Receipt Date: 20210330
  Transmission Date: 20210420
  Serious: Yes (Hospitalization)
  Sender: FDA-Public Use
  Company Number: NL-TEVA-2021-NL-1892885

PATIENT
  Age: 3 Week
  Sex: Male

DRUGS (6)
  1. IV IMMUNOGLOBULIN [Suspect]
     Active Substance: HUMAN IMMUNOGLOBULIN G
     Indication: PNEUMONIA PSEUDOMONAL
     Route: 042
  2. CIPROFLOXACIN. [Suspect]
     Active Substance: CIPROFLOXACIN
     Indication: PNEUMONIA PSEUDOMONAL
     Route: 065
  3. CEFTAZIDIME. [Suspect]
     Active Substance: CEFTAZIDIME
     Indication: PNEUMONIA PSEUDOMONAL
     Route: 065
  4. MEROPENEM. [Suspect]
     Active Substance: MEROPENEM
     Indication: PNEUMONIA PSEUDOMONAL
     Route: 065
  5. TOBRAMYCIN. [Suspect]
     Active Substance: TOBRAMYCIN
     Indication: PNEUMONIA PSEUDOMONAL
     Dosage: NEBULISED
     Route: 050
  6. AMOXICILLIN W/CLAVULANIC ACID [Suspect]
     Active Substance: AMOXICILLIN\CLAVULANIC ACID
     Indication: PNEUMONIA PSEUDOMONAL
     Route: 065

REACTIONS (2)
  - Pathogen resistance [Unknown]
  - Drug ineffective [Unknown]
